FAERS Safety Report 23204757 (Version 3)
Quarter: 2024Q1

REPORT INFORMATION
  Report Type: Report from Study
  Country: US (occurrence: US)
  Receive Date: 20231120
  Receipt Date: 20240319
  Transmission Date: 20240410
  Serious: Yes (Hospitalization, Other)
  Sender: FDA-Public Use
  Company Number: US-GILEAD-2023-0651684

PATIENT
  Sex: Male

DRUGS (3)
  1. AMBRISENTAN [Suspect]
     Active Substance: AMBRISENTAN
     Indication: Pulmonary hypertension
     Dosage: 10 MG, QD
     Route: 065
     Dates: start: 20220325
  2. WARFARIN [Concomitant]
     Active Substance: WARFARIN
  3. TADALAFIL [Concomitant]
     Active Substance: TADALAFIL

REACTIONS (8)
  - Cardiac failure congestive [Unknown]
  - Upper respiratory tract infection [Unknown]
  - Staphylococcal infection [Unknown]
  - Transfusion [Unknown]
  - Hypersensitivity [Unknown]
  - Blood potassium decreased [Unknown]
  - Dyspnoea [Not Recovered/Not Resolved]
  - Oxygen consumption increased [Unknown]
